FAERS Safety Report 19498856 (Version 1)
Quarter: 2021Q3

REPORT INFORMATION
  Report Type: Spontaneous
  Country: FR (occurrence: FR)
  Receive Date: 20210707
  Receipt Date: 20210707
  Transmission Date: 20211014
  Serious: Yes (Other)
  Sender: FDA-Public Use
  Company Number: FR-CELLTRION INC.-2021FR008705

PATIENT

DRUGS (6)
  1. RITUXIMAB (UNKNOWN) [Suspect]
     Active Substance: RITUXIMAB
     Indication: GLOMERULONEPHRITIS RAPIDLY PROGRESSIVE
  2. CYCLOPHOSPHAMIDE. [Suspect]
     Active Substance: CYCLOPHOSPHAMIDE
     Indication: ANTINEUTROPHIL CYTOPLASMIC ANTIBODY NEGATIVE
     Dosage: INDUCTION TREATMENT
  3. CORTICOSTEROIDS [Suspect]
     Active Substance: CORTICOSTEROID NOS
     Indication: GLOMERULONEPHRITIS RAPIDLY PROGRESSIVE
     Dosage: MAINTENANCE TREATMENT
  4. RITUXIMAB (UNKNOWN) [Suspect]
     Active Substance: RITUXIMAB
     Indication: ANTINEUTROPHIL CYTOPLASMIC ANTIBODY NEGATIVE
     Dosage: INDUCTION TREATMENT
  5. CORTICOSTEROIDS [Suspect]
     Active Substance: CORTICOSTEROID NOS
     Indication: ANTINEUTROPHIL CYTOPLASMIC ANTIBODY NEGATIVE
     Dosage: INDUCTION TREATMENT
  6. CYCLOPHOSPHAMIDE. [Suspect]
     Active Substance: CYCLOPHOSPHAMIDE
     Indication: GLOMERULONEPHRITIS RAPIDLY PROGRESSIVE

REACTIONS (1)
  - End stage renal disease [Unknown]
